FAERS Safety Report 20779104 (Version 2)
Quarter: 2022Q2

REPORT INFORMATION
  Report Type: Spontaneous
  Country: JP (occurrence: JP)
  Receive Date: 20220503
  Receipt Date: 20220518
  Transmission Date: 20220721
  Serious: Yes (Death, Life-Threatening, Hospitalization, Other)
  Sender: FDA-Public Use
  Company Number: JP-TEVA-2022-JP-2033181

PATIENT
  Age: 70 Year
  Sex: Female
  Weight: 49 kg

DRUGS (3)
  1. PREDNISOLONE [Suspect]
     Active Substance: PREDNISOLONE
     Indication: Interstitial lung disease
     Dosage: 30 MILLIGRAM DAILY;
     Route: 048
  2. DENOSUMAB [Suspect]
     Active Substance: DENOSUMAB
     Indication: Lung neoplasm malignant
     Route: 065
  3. DENOSUMAB [Suspect]
     Active Substance: DENOSUMAB
     Dosage: SIXTH-LINE CHEMOTHERAPY
     Route: 065

REACTIONS (11)
  - Osteonecrosis of jaw [Recovering/Resolving]
  - Respiratory failure [Fatal]
  - Abscess neck [Recovering/Resolving]
  - Cellulitis [Recovering/Resolving]
  - Sepsis [Recovering/Resolving]
  - Septic shock [Recovering/Resolving]
  - Streptococcal infection [Recovering/Resolving]
  - Staphylococcal infection [Recovering/Resolving]
  - Parvimonas micra infection [Recovering/Resolving]
  - Bacterial infection [Recovering/Resolving]
  - Renal injury [Unknown]
